FAERS Safety Report 21574526 (Version 2)
Quarter: 2022Q4

REPORT INFORMATION
  Report Type: Spontaneous
  Country: UZ (occurrence: UZ)
  Receive Date: 20221109
  Receipt Date: 20221111
  Transmission Date: 20230113
  Serious: Yes (Death, Hospitalization)
  Sender: FDA-Public Use
  Company Number: UZ-JNJFOC-20221103693

PATIENT
  Age: 68 Year
  Sex: Male
  Weight: 70 kg

DRUGS (4)
  1. SIRTURO [Suspect]
     Active Substance: BEDAQUILINE FUMARATE
     Indication: Pulmonary tuberculosis
     Dosage: DOSE: 400
     Route: 048
     Dates: start: 20220920, end: 20220923
  2. LINEZOLID [Suspect]
     Active Substance: LINEZOLID
     Indication: Pulmonary tuberculosis
     Dosage: DOSE: 300
     Route: 048
     Dates: start: 20220920, end: 20220923
  3. CLOFAZIMINE [Suspect]
     Active Substance: CLOFAZIMINE
     Indication: Pulmonary tuberculosis
     Dosage: DOSE: 100
     Route: 048
     Dates: start: 20220920, end: 20220923
  4. MOXIFLOXACIN [Suspect]
     Active Substance: MOXIFLOXACIN
     Indication: Pulmonary tuberculosis
     Dosage: DOSE: 400
     Route: 048
     Dates: start: 20220920, end: 20220923

REACTIONS (3)
  - Death [Fatal]
  - Cardiovascular insufficiency [Unknown]
  - Poisoning [Unknown]

NARRATIVE: CASE EVENT DATE: 20220923
